FAERS Safety Report 20954147 (Version 3)
Quarter: 2022Q3

REPORT INFORMATION
  Report Type: Spontaneous
  Country: US (occurrence: US)
  Receive Date: 20220614
  Receipt Date: 20220725
  Transmission Date: 20221026
  Serious: No
  Sender: FDA-Public Use
  Company Number: US-JNJFOC-20220614974

PATIENT
  Age: 8 Decade
  Sex: Female

DRUGS (2)
  1. ZYRTEC [Suspect]
     Active Substance: CETIRIZINE HYDROCHLORIDE
     Indication: Rhinorrhoea
     Dosage: 1 TABLET
     Route: 048
     Dates: start: 202203, end: 2022
  2. ZYRTEC [Suspect]
     Active Substance: CETIRIZINE HYDROCHLORIDE
     Indication: Seasonal allergy

REACTIONS (2)
  - Drug ineffective [Unknown]
  - Product administration error [Unknown]

NARRATIVE: CASE EVENT DATE: 20220101
